FAERS Safety Report 7495047-5 (Version None)
Quarter: 2011Q2

REPORT INFORMATION
  Report Type: 
  Country: None (occurrence: None)
  Receive Date: 20110520
  Receipt Date: 20110512
  Transmission Date: 20111010
  Serious: Yes (Hospitalization, Disabling, Other)
  Sender: FDA-Public Use
  Company Number: GB-MPIJNJ-2011-01021

PATIENT

DRUGS (8)
  1. MORPHINE SULFATE [Concomitant]
     Dosage: 30 MG, UNK
     Route: 048
  2. TRIMETHOPRIM [Concomitant]
     Dosage: 200 MG, UNK
     Route: 048
  3. OMEPRAZOLE [Concomitant]
     Dosage: 20 MG, UNK
     Route: 048
     Dates: start: 20100903
  4. VELCADE [Suspect]
     Indication: MULTIPLE MYELOMA
     Dosage: 2.3 MG, CYCLIC
     Route: 042
     Dates: start: 20100903, end: 20101004
  5. DEXAMETHASONE [Concomitant]
     Indication: MULTIPLE MYELOMA
     Dosage: 20 MG, CYCLIC
     Route: 048
  6. ACETAMINOPHEN [Concomitant]
     Dosage: 1 G, UNK
     Route: 048
  7. ACYCLOVIR [Concomitant]
     Dosage: 400 MG, UNK
     Route: 048
  8. DIAZEPAM [Concomitant]
     Dosage: 2 MG, UNK

REACTIONS (6)
  - DEPRESSION [None]
  - COGNITIVE DISORDER [None]
  - CONFUSIONAL STATE [None]
  - URINARY TRACT INFECTION [None]
  - MENTAL STATUS CHANGES [None]
  - HYPERTHYROIDISM [None]
